FAERS Safety Report 4836656-9 (Version None)
Quarter: 2005Q4

REPORT INFORMATION
  Report Type: 
  Country: None (occurrence: None)
  Receive Date: 20051121
  Receipt Date: 20051108
  Transmission Date: 20060501
  Serious: Yes (Hospitalization)
  Sender: FDA-Public Use
  Company Number: MEDI-0003800

PATIENT
  Age: 9 Month
  Sex: Female
  Weight: 6 kg

DRUGS (6)
  1. SYNAGIS [Suspect]
     Indication: ANTIVIRAL PROPHYLAXIS
     Dosage: SEE IMAGE
     Route: 030
     Dates: start: 20051005, end: 20051005
  2. SYNAGIS [Suspect]
     Indication: ANTIVIRAL PROPHYLAXIS
     Dosage: SEE IMAGE
     Route: 030
     Dates: start: 20051107
  3. FREEZE-DRIED SULFONATED HUMAN IMMUNOGLOBULIN (IMMUNOGLOBULIN HUMAN NOR [Suspect]
     Indication: KAWASAKI'S DISEASE
     Dosage: 12.5 GM, INTRAVENOUS
     Route: 042
     Dates: start: 20051021
  4. ASPIRIN [Suspect]
     Indication: ANTICOAGULANT THERAPY
     Dosage: SEE IMAGE
     Route: 048
     Dates: start: 20051020, end: 20051020
  5. ASPIRIN [Suspect]
     Indication: ANTICOAGULANT THERAPY
     Dosage: SEE IMAGE
     Route: 048
     Dates: start: 20051023, end: 20051026
  6. FERRIC PYROPHOSPHATE (FERRIC PYROPHOSPHATE) [Concomitant]

REACTIONS (5)
  - ALANINE AMINOTRANSFERASE INCREASED [None]
  - ASPARTATE AMINOTRANSFERASE INCREASED [None]
  - GAMMA-GLUTAMYLTRANSFERASE INCREASED [None]
  - HEPATIC FUNCTION ABNORMAL [None]
  - KAWASAKI'S DISEASE [None]
